FAERS Safety Report 20460765 (Version 3)
Quarter: 2022Q2

REPORT INFORMATION
  Report Type: Report from Study
  Country: US (occurrence: US)
  Receive Date: 20220211
  Receipt Date: 20220408
  Transmission Date: 20220720
  Serious: Yes (Other)
  Sender: FDA-Public Use
  Company Number: US-CATALYST PHARMACEUTICALS, INC-2022CAT00041

PATIENT
  Sex: Female

DRUGS (1)
  1. FIRDAPSE [Suspect]
     Active Substance: AMIFAMPRIDINE PHOSPHATE
     Indication: Myasthenic syndrome
     Dosage: UNK
     Route: 048
     Dates: start: 20191229

REACTIONS (6)
  - Neutropenia [Not Recovered/Not Resolved]
  - Laboratory test abnormal [Unknown]
  - Fatigue [Unknown]
  - Pruritus [Unknown]
  - Iron deficiency [Not Recovered/Not Resolved]
  - Lymphadenopathy [Unknown]
